FAERS Safety Report 21461035 (Version 2)
Quarter: 2023Q2

REPORT INFORMATION
  Report Type: Report from Study
  Country: DE (occurrence: None)
  Receive Date: 20221015
  Receipt Date: 20230609
  Transmission Date: 20230721
  Serious: Yes (Hospitalization)
  Sender: FDA-Public Use
  Company Number: DE-ROCHE-3152098

PATIENT
  Age: 47 Year
  Sex: Female
  Weight: 51.7 kg

DRUGS (4)
  1. ATEZOLIZUMAB [Suspect]
     Active Substance: ATEZOLIZUMAB
     Indication: Colorectal cancer metastatic
     Dosage: THE LAST REPORTED STUDY DOSE OF ATEZOLIZUMAB PRIOR TO EVENT ONSET DATE WAS ADMINISTERED ON 03/AUG/20
     Route: 041
     Dates: start: 20220720
  2. PELAREOREP [Suspect]
     Active Substance: PELAREOREP
     Indication: Colorectal cancer metastatic
     Dosage: DOSE: 4,5E10 TCID50?THE LAST REPORTED STUDY DOSE OF PELAREOREP PRIOR TO EVENT ONSET DATE WAS ADMINIS
     Route: 042
     Dates: start: 20220719
  3. TIPIRACIL HYDROCHLORIDE\TRIFLURIDINE [Suspect]
     Active Substance: TIPIRACIL HYDROCHLORIDE\TRIFLURIDINE
     Indication: Colorectal cancer metastatic
     Dosage: 110 UNK?THE LAST REPORTED STUDY DOSE OF TRIFLURIDINE/TIPIRACIL PRIOR TO EVENT ONSET DATE WAS ADMINIS
     Route: 048
     Dates: start: 20220719
  4. NEUPOGEN [Concomitant]
     Active Substance: FILGRASTIM
     Dosage: 30 000 000 IU QD
     Dates: start: 20220810, end: 20220812

REACTIONS (2)
  - Pyrexia [Recovered/Resolved]
  - Urinary tract infection [Recovered/Resolved]

NARRATIVE: CASE EVENT DATE: 20220720
